FAERS Safety Report 18158059 (Version 1)
Quarter: 2020Q3

REPORT INFORMATION
  Report Type: Spontaneous
  Country: US (occurrence: US)
  Receive Date: 20200817
  Receipt Date: 20200817
  Transmission Date: 20201103
  Serious: No
  Sender: FDA-Public Use
  Company Number: US-MEDEXUS PHARMA, INC.-2020MED00142

PATIENT
  Age: 62 Year
  Sex: Female
  Weight: 86.17 kg

DRUGS (23)
  1. MELOXICAM. [Concomitant]
     Active Substance: MELOXICAM
  2. AMLODIPINE [Concomitant]
     Active Substance: AMLODIPINE BESYLATE
  3. TRAZODONE [Concomitant]
     Active Substance: TRAZODONE HYDROCHLORIDE
  4. RASUVO [Suspect]
     Active Substance: METHOTREXATE SODIUM
     Indication: RHEUMATOID ARTHRITIS
     Dosage: UNK ^HIGHER DOSE THAN 20 MG^, 1X/WEEK INJECTED INTO ALTERNATING THIGHS, RIGHT AND LEFT
     Dates: start: 201607, end: 2016
  5. RASUVO [Suspect]
     Active Substance: METHOTREXATE SODIUM
     Dosage: 17.5 MG, 1X/WEEK INJECTED INTO ALTERNATING THIGHS, RIGHT AND LEFT
     Dates: start: 20170629
  6. BUSPIRONE [Concomitant]
     Active Substance: BUSPIRONE HYDROCHLORIDE
  7. DICLOFENAC [Concomitant]
     Active Substance: DICLOFENAC
  8. HYDROXYCHLOROQUINE [Concomitant]
     Active Substance: HYDROXYCHLOROQUINE
  9. RASUVO [Suspect]
     Active Substance: METHOTREXATE SODIUM
     Dosage: UNK ^20 MG OR MAYBE MORE THAN THAT^, 1X/WEEK INJECTED INTO ALTERNATING THIGHS, RIGHT AND LEFT
     Dates: start: 2016
  10. MYRBETRIQ [Concomitant]
     Active Substance: MIRABEGRON
  11. MONTELUKAST [Concomitant]
     Active Substance: MONTELUKAST SODIUM
  12. FOLIC ACID. [Concomitant]
     Active Substance: FOLIC ACID
  13. METHOCARBAMOL. [Concomitant]
     Active Substance: METHOCARBAMOL
     Dosage: DOES NOT TAKE WITH CYCLOBENZAPRINE; TAKES ONE OR THE OTHER, AS NEEDED
  14. CYCLOBENZAPRINE. [Concomitant]
     Active Substance: CYCLOBENZAPRINE
     Dosage: DOES NOT TAKE WITH METHOCARBAMOL; TAKES ONE OR THE OTHER, AS NEEDED
  15. IMVEXXY [Concomitant]
     Active Substance: ESTRADIOL
  16. XELJANZ [Suspect]
     Active Substance: TOFACITINIB CITRATE
     Indication: RHEUMATOID ARTHRITIS
  17. LISINOPRIL AND HYDROCHLOROTHIAZIDE [Concomitant]
     Active Substance: HYDROCHLOROTHIAZIDE\LISINOPRIL
  18. TRAMADOL. [Concomitant]
     Active Substance: TRAMADOL
     Dosage: UNK, AS NEEDED
  19. RASUVO [Suspect]
     Active Substance: METHOTREXATE SODIUM
     Dosage: 10 MG, ONCE  INJECTED INTO ALTERNATING THIGHS, RIGHT AND LEFT
     Dates: start: 20200308, end: 20200308
  20. FLUTICASONE. [Concomitant]
     Active Substance: FLUTICASONE
  21. POTASSIUM [Concomitant]
     Active Substance: POTASSIUM
  22. TRIAMCINOLONE MOUTH PASTE [Concomitant]
  23. MULTIPLE UNSPECIFIED SUPPLEMENTS [Concomitant]

REACTIONS (10)
  - Aphthous ulcer [Recovered/Resolved]
  - Gingival pain [Recovered/Resolved]
  - Alanine aminotransferase increased [Recovering/Resolving]
  - Mouth haemorrhage [Recovered/Resolved]
  - Alopecia [Recovered/Resolved]
  - Herpes virus infection [Recovered/Resolved]
  - Oral mucosal erythema [Recovered/Resolved]
  - Mouth ulceration [Recovered/Resolved]
  - Candida infection [Unknown]
  - Stomatitis [Recovered/Resolved]

NARRATIVE: CASE EVENT DATE: 2016
